FAERS Safety Report 17152914 (Version 2)
Quarter: 2019Q4

REPORT INFORMATION
  Report Type: Spontaneous
  Country: CN (occurrence: CN)
  Receive Date: 20191213
  Receipt Date: 20191230
  Transmission Date: 20200122
  Serious: No
  Sender: FDA-Public Use
  Company Number: CN-009507513-1912CHN004883

PATIENT
  Age: 72 Year
  Sex: Male
  Weight: 62 kg

DRUGS (1)
  1. ZOCOR [Suspect]
     Active Substance: SIMVASTATIN
     Indication: HYPERLIPIDAEMIA
     Dosage: 20MG PO ^^QN^^
     Route: 048
     Dates: start: 20191109, end: 20191109

REACTIONS (2)
  - Pain in extremity [Recovered/Resolved]
  - Myalgia [Recovered/Resolved]

NARRATIVE: CASE EVENT DATE: 20191109
